FAERS Safety Report 24116750 (Version 1)
Quarter: 2024Q3

REPORT INFORMATION
  Report Type: Report from Study
  Country: US (occurrence: None)
  Receive Date: 20240722
  Receipt Date: 20240722
  Transmission Date: 20241017
  Serious: Yes (Hospitalization, Other)
  Sender: ASTRAZENECA
  Company Number: 2019SF03095

PATIENT
  Sex: Female

DRUGS (1)
  1. TAGRISSO [Suspect]
     Active Substance: OSIMERTINIB
     Indication: Lung neoplasm malignant
     Route: 048
     Dates: start: 20190622

REACTIONS (6)
  - Gait inability [Unknown]
  - Dehydration [Unknown]
  - Muscle spasms [Unknown]
  - Haemorrhage [Unknown]
  - Nasal dryness [Unknown]
  - Skin exfoliation [Unknown]
